FAERS Safety Report 8133289-6 (Version None)
Quarter: 2012Q1

REPORT INFORMATION
  Report Type: 
  Country: None (occurrence: None)
  Receive Date: 20120213
  Receipt Date: 20120206
  Transmission Date: 20120608
  Serious: Yes (Hospitalization)
  Sender: FDA-Public Use
  Company Number: US-BAYER-2012-002225

PATIENT
  Age: 28 Year
  Sex: Female
  Weight: 68.934 kg

DRUGS (3)
  1. YAZ [Suspect]
     Indication: CONTRACEPTION
     Dosage: UNK
     Route: 048
     Dates: start: 20070601, end: 20081001
  2. DROSPIRENONE AND ETHINYL ESTRADIOL [Suspect]
     Indication: CONTRACEPTION
     Dosage: UNK
     Route: 048
     Dates: start: 20081001, end: 20100101
  3. LOESTRIN 1.5/30 [Concomitant]
     Indication: CONTRACEPTION
     Dosage: UNK
     Route: 048
     Dates: start: 20100101

REACTIONS (8)
  - INJURY [None]
  - CHOLECYSTITIS [None]
  - PAIN [None]
  - DEPRESSION [None]
  - NERVOUSNESS [None]
  - ABDOMINAL PAIN [None]
  - FEAR OF DEATH [None]
  - EMOTIONAL DISTRESS [None]
